FAERS Safety Report 9148045 (Version 3)
Quarter: 2013Q2

REPORT INFORMATION
  Report Type: Spontaneous
  Country: JP (occurrence: JP)
  Receive Date: 20130308
  Receipt Date: 20130528
  Transmission Date: 20140414
  Serious: Yes (Other)
  Sender: FDA-Public Use
  Company Number: JP-AMGEN-JPNSP2013015610

PATIENT
  Age: 43 Year
  Sex: Male
  Weight: 65 kg

DRUGS (8)
  1. RANMARK [Suspect]
     Indication: GASTRIC CANCER
     Dosage: 120 MG, QD
     Route: 042
     Dates: start: 20130222, end: 20130222
  2. ASPARA-CA [Concomitant]
     Indication: HYPOCALCAEMIA
     Route: 065
  3. ASPARA-CA [Concomitant]
     Route: 048
     Dates: start: 20121210, end: 20130227
  4. ALFAROL [Concomitant]
     Indication: HYPOCALCAEMIA
     Dosage: UNKNOWN
     Route: 048
     Dates: start: 20130221
  5. CALONAL [Concomitant]
     Indication: ANALGESIC THERAPY
     Route: 048
     Dates: start: 20130206
  6. MAGNESIUM OXIDE [Concomitant]
     Indication: LAXATIVE SUPPORTIVE CARE
     Route: 048
     Dates: start: 20110608
  7. AMOBANTES [Concomitant]
     Indication: SLEEP DISORDER
     Route: 048
     Dates: start: 20110323
  8. MEILAX [Concomitant]
     Indication: SLEEP DISORDER
     Route: 048
     Dates: start: 20110715

REACTIONS (1)
  - Hypocalcaemia [Recovering/Resolving]
